FAERS Safety Report 4787245-6 (Version None)
Quarter: 2005Q4

REPORT INFORMATION
  Report Type: 
  Country: None (occurrence: None)
  Receive Date: 20051004
  Receipt Date: 20050928
  Transmission Date: 20060501
  Serious: Yes (Hospitalization)
  Sender: FDA-Public Use
  Company Number: PHNU2005DE03311

PATIENT
  Age: 82 Year
  Sex: Female

DRUGS (1)
  1. EMSELEX EXTENDED RELEASE [Suspect]
     Dosage: 7.5 MG, QD
     Route: 048
     Dates: start: 20050913

REACTIONS (1)
  - PANCYTOPENIA [None]
